FAERS Safety Report 5490577-X (Version None)
Quarter: 2007Q4

REPORT INFORMATION
  Report Type: 
  Country: None (occurrence: None)
  Receive Date: 20071019
  Receipt Date: 20071009
  Transmission Date: 20080405
  Serious: Yes (Hospitalization)
  Sender: FDA-Public Use
  Company Number: US-JNJFOC-20071003674

PATIENT
  Sex: Female

DRUGS (4)
  1. DURAGESIC-100 [Suspect]
     Indication: PAIN
     Route: 062
  2. CLARITIN [Concomitant]
     Indication: SEASONAL ALLERGY
     Route: 048
  3. PROGRAF [Concomitant]
     Indication: HEPATIC FAILURE
     Route: 048
  4. PROTONIX [Concomitant]
     Indication: GASTROOESOPHAGEAL REFLUX DISEASE
     Route: 048

REACTIONS (4)
  - HYPERHIDROSIS [None]
  - INCORRECT DRUG ADMINISTRATION DURATION [None]
  - LIVER TRANSPLANT REJECTION [None]
  - WRONG TECHNIQUE IN DRUG USAGE PROCESS [None]
